FAERS Safety Report 8407578-1 (Version None)
Quarter: 2012Q2

REPORT INFORMATION
  Report Type: 
  Country: None (occurrence: None)
  Receive Date: 20120604
  Receipt Date: 20120525
  Transmission Date: 20120825
  Serious: Yes (Hospitalization, Other)
  Sender: FDA-Public Use
  Company Number: US-ASTRAZENECA-2012SE18260

PATIENT
  Age: 75 Year
  Sex: Female

DRUGS (2)
  1. NEXIUM [Suspect]
     Route: 048
  2. SYMBICORT [Suspect]
     Route: 055

REACTIONS (5)
  - INFECTION [None]
  - STAPHYLOCOCCAL INFECTION [None]
  - MALAISE [None]
  - RASH [None]
  - NEOPLASM MALIGNANT [None]
